FAERS Safety Report 19031722 (Version 1)
Quarter: 2021Q1

REPORT INFORMATION
  Report Type: Spontaneous
  Country: US (occurrence: US)
  Receive Date: 20210319
  Receipt Date: 20210319
  Transmission Date: 20210420
  Serious: Yes (Other)
  Sender: FDA-Public Use
  Company Number: US-PFIZER INC-2021252257

PATIENT
  Sex: Male

DRUGS (1)
  1. ANTILYMPHOCYTE IMMUNOGLOBULINS [Suspect]
     Active Substance: THYMOCYTE IMMUNE GLOBULIN NOS
     Dosage: UNK

REACTIONS (1)
  - Vasoplegia syndrome [Unknown]
